FAERS Safety Report 19882323 (Version 1)
Quarter: 2021Q3

REPORT INFORMATION
  Report Type: Spontaneous
  Country: US (occurrence: US)
  Receive Date: 20210925
  Receipt Date: 20210925
  Transmission Date: 20211014
  Serious: Yes (Other)
  Sender: FDA-Public Use
  Company Number: US-TEVA-2021-US-1958200

PATIENT
  Age: 57 Year
  Sex: Female
  Weight: 132 kg

DRUGS (10)
  1. LEUCOVORIN. [Concomitant]
     Active Substance: LEUCOVORIN
     Indication: NEUROENDOCRINE TUMOUR
     Dosage: DOSE: 964 MG
     Route: 065
  2. IBUPROFEN. [Concomitant]
     Active Substance: IBUPROFEN
     Route: 065
  3. EMEND [Concomitant]
     Active Substance: APREPITANT
     Indication: NEUROENDOCRINE TUMOUR
     Dosage: DOSE: 150 MG
     Route: 065
  4. ALOXI [Concomitant]
     Active Substance: PALONOSETRON HYDROCHLORIDE
     Indication: NEUROENDOCRINE TUMOUR
     Dosage: DOSE: 0.25 MG
     Route: 065
  5. OXALIPLATIN. [Suspect]
     Active Substance: OXALIPLATIN
     Indication: NEUROENDOCRINE TUMOUR
     Dosage: DOSE: 157 MG
     Route: 065
  6. GLIPIZIDE. [Concomitant]
     Active Substance: GLIPIZIDE
     Indication: DIABETES MELLITUS
     Dosage: DOSE: 10 MG
     Route: 065
     Dates: start: 20170313, end: 201801
  7. METOPROLOL. [Concomitant]
     Active Substance: METOPROLOL
     Indication: BLOOD PRESSURE MEASUREMENT
     Dosage: DOSE: 50 MG
     Route: 065
     Dates: start: 20160104, end: 20171214
  8. DECADRON [Concomitant]
     Active Substance: DEXAMETHASONE
     Indication: NEUROENDOCRINE TUMOUR
     Dosage: DOSE: 10 MG
     Route: 065
  9. FLUOROURACIL. [Concomitant]
     Active Substance: FLUOROURACIL
     Indication: NEUROENDOCRINE TUMOUR
     Dosage: DOSE: 5784 MG
     Route: 065
  10. METFORMIN [Concomitant]
     Active Substance: METFORMIN HYDROCHLORIDE
     Indication: DIABETES MELLITUS
     Dosage: DOSE: 500 MG
     Route: 065
     Dates: start: 20151027, end: 201801

REACTIONS (2)
  - Neuropathy peripheral [Unknown]
  - Infusion related reaction [Unknown]
